FAERS Safety Report 22400498 (Version 1)
Quarter: 2023Q2

REPORT INFORMATION
  Report Type: Spontaneous
  Country: NL (occurrence: NL)
  Receive Date: 20230602
  Receipt Date: 20230602
  Transmission Date: 20230721
  Serious: Yes (Death)
  Sender: FDA-Public Use
  Company Number: None

PATIENT
  Sex: Male

DRUGS (1)
  1. NIVOLUMAB [Suspect]
     Active Substance: NIVOLUMAB
     Indication: Pancreatic carcinoma
     Dates: start: 20221020, end: 20221110

REACTIONS (5)
  - Autoimmune hepatitis [Fatal]
  - Neurological symptom [Fatal]
  - Autoimmune myositis [Fatal]
  - Autoimmune myocarditis [Fatal]
  - Off label use [Unknown]
